FAERS Safety Report 4869796-9 (Version None)
Quarter: 2005Q4

REPORT INFORMATION
  Report Type: 
  Country: None (occurrence: None)
  Receive Date: 20051223
  Receipt Date: 20051214
  Transmission Date: 20060501
  Serious: Yes (Hospitalization)
  Sender: FDA-Public Use
  Company Number: HQWYE528611JAN05

PATIENT
  Age: 54 Year
  Sex: Male
  Weight: 45.3 kg

DRUGS (1)
  1. MYLOTARG [Suspect]
     Indication: ACUTE MYELOID LEUKAEMIA
     Dosage: 12 MG 1X PER 1 DAY, INTRAVENOUS
     Route: 042
     Dates: start: 20040922, end: 20040922

REACTIONS (6)
  - ASTHENIA [None]
  - BACTERIAL SEPSIS [None]
  - HEPATOMEGALY [None]
  - NAUSEA [None]
  - VOMITING [None]
  - WEIGHT INCREASED [None]
